FAERS Safety Report 13509934 (Version 2)
Quarter: 2018Q4

REPORT INFORMATION
  Report Type: Spontaneous
  Country: US (occurrence: US)
  Receive Date: 20170503
  Receipt Date: 20181022
  Transmission Date: 20190204
  Serious: No
  Sender: FDA-Public Use
  Company Number: US-SA-2017SA055545

PATIENT
  Age: 66 Year
  Sex: Male

DRUGS (1)
  1. PRALUENT [Suspect]
     Active Substance: ALIROCUMAB
     Indication: ARTERIOSCLEROSIS
     Dosage: 75 MG,QOW
     Route: 058
     Dates: start: 20161108

REACTIONS (2)
  - Product dose omission [Unknown]
  - Chest discomfort [Unknown]

NARRATIVE: CASE EVENT DATE: 201612
